FAERS Safety Report 9390932 (Version 1)
Quarter: 2013Q3

REPORT INFORMATION
  Report Type: Spontaneous
  Country: US (occurrence: None)
  Receive Date: 20130705
  Receipt Date: 20130705
  Transmission Date: 20140515
  Serious: Yes (Hospitalization, Other)
  Sender: FDA-Public Use
  Company Number: None

PATIENT
  Age: 62 Year
  Sex: Male
  Weight: 147.42 kg

DRUGS (8)
  1. XARELTO [Suspect]
     Indication: ANTICOAGULANT THERAPY
     Dosage: 2PUFFS BID
     Route: 048
     Dates: start: 20121003, end: 20121127
  2. DULERA INHALATION AEROSOL [Concomitant]
  3. TOPAMAX TABLETS [Concomitant]
  4. SYNTHROID TABLETS [Concomitant]
  5. UROXATRAL [Concomitant]
  6. DITROPAN XL EXTENDED-RELEASE TABLETS [Concomitant]
  7. CLONAZEPAM TABLETS, USP [Concomitant]
  8. DILAUDID TABLETS [Concomitant]

REACTIONS (3)
  - Asthenia [None]
  - Asthma [None]
  - Impaired work ability [None]
